FAERS Safety Report 7722576-9 (Version None)
Quarter: 2011Q3

REPORT INFORMATION
  Report Type: 
  Country: None (occurrence: None)
  Receive Date: 20110831
  Receipt Date: 20110826
  Transmission Date: 20111222
  Serious: Yes (Life-Threatening, Hospitalization, Other)
  Sender: FDA-Public Use
  Company Number: DE-PFIZER INC-2011200434

PATIENT
  Age: 73 Year
  Sex: Female
  Weight: 99.1 kg

DRUGS (16)
  1. FUROSEMIDE [Concomitant]
     Indication: OEDEMA
     Dosage: 40 MG, 1X/DAY
     Route: 048
     Dates: end: 20110729
  2. LYRICA [Suspect]
     Indication: HERPES ZOSTER
     Dosage: 75 MG, 2X/DAY
     Route: 048
     Dates: start: 20110724, end: 20110727
  3. ALLOBETA [Concomitant]
     Indication: HYPERURICAEMIA
     Dosage: 300 MG, 1X/DAY
     Route: 048
  4. PANTOPRAZOLE [Concomitant]
     Indication: GASTRITIS
     Dosage: 20 MG, 1X/DAY
     Route: 048
  5. FUROSEMIDE [Concomitant]
     Indication: HYPERTENSION
  6. CALCIUM CARBONATE/COLECALCIFEROL [Concomitant]
     Indication: OSTEOPOROSIS
     Dosage: UNK
     Route: 048
  7. PREDNISOLONE [Concomitant]
     Indication: MUSCULOSKELETAL PAIN
     Dosage: 2.5 MG, 1X/DAY
     Route: 048
  8. VALSARTAN  AND HYDROCHLOROTHIAZIDE [Concomitant]
     Indication: HYPERTENSION
  9. CARMEN [Concomitant]
     Indication: HYPERTENSION
  10. ARIXTRA [Concomitant]
     Dosage: 7.5 MG, 1X/DAY
     Route: 058
  11. LYRICA [Suspect]
     Indication: NEURALGIA
  12. CARVEDILOL [Concomitant]
     Indication: HYPERTONIA
     Dosage: 25 MG, 1X/DAY
     Route: 048
  13. VALSARTAN  AND HYDROCHLOROTHIAZIDE [Concomitant]
     Indication: CARDIAC FAILURE
  14. FUROSEMIDE [Concomitant]
     Indication: CARDIAC FAILURE
  15. VALSARTAN  AND HYDROCHLOROTHIAZIDE [Concomitant]
     Indication: OEDEMA
     Dosage: 25/160 MG, 1X/DAY
     Route: 048
  16. CARMEN [Concomitant]
     Indication: CARDIAC FAILURE
     Dosage: 10 MG, 1X/DAY
     Route: 048

REACTIONS (1)
  - INAPPROPRIATE ANTIDIURETIC HORMONE SECRETION [None]
